FAERS Safety Report 10203566 (Version 2)
Quarter: 2014Q2

REPORT INFORMATION
  Report Type: Spontaneous
  Country: DE (occurrence: None)
  Receive Date: 20140523
  Receipt Date: 20140604
  Transmission Date: 20141212
  Serious: Yes (Hospitalization, Other)
  Sender: FDA-Public Use
  Company Number: AUR-APL-2014-05980

PATIENT
  Age: 29 Year
  Sex: Female

DRUGS (1)
  1. QUETIAPINE (QUETIAPINE) [Suspect]
     Indication: SCHIZOPHRENIA, PARANOID TYPE
     Route: 048
     Dates: start: 20130719, end: 20130719

REACTIONS (9)
  - Maternal exposure during pregnancy [None]
  - Hypophagia [None]
  - Affect lability [None]
  - Delusional perception [None]
  - Hostility [None]
  - Somnolence [None]
  - Convulsion [None]
  - Caesarean section [None]
  - Drug level increased [None]
